FAERS Safety Report 14282020 (Version 1)
Quarter: 2017Q4

REPORT INFORMATION
  Report Type: Spontaneous
  Country: US (occurrence: US)
  Receive Date: 20171213
  Receipt Date: 20171213
  Transmission Date: 20180321
  Serious: No
  Sender: FDA-Public Use
  Company Number: US-PFIZER INC-2017528501

PATIENT
  Age: 77 Year
  Sex: Female
  Weight: 97.7 kg

DRUGS (5)
  1. VITAMIN D [Concomitant]
     Active Substance: CHOLECALCIFEROL
     Dosage: 2000 IU, DAILY
  2. LYRICA [Suspect]
     Active Substance: PREGABALIN
     Indication: NEUROPATHY PERIPHERAL
     Dosage: 75MG 1 AT BED TIME
  3. VITAMIN B12 [Concomitant]
     Active Substance: CYANOCOBALAMIN
     Dosage: 1 DF, WEEKLY
  4. LYRICA [Suspect]
     Active Substance: PREGABALIN
     Dosage: 75MG 1 AT BED TIME
     Dates: start: 20171102
  5. CENTRUM [Concomitant]
     Active Substance: VITAMINS
     Dosage: 1 DF, DAILY

REACTIONS (6)
  - Movement disorder [Unknown]
  - Feeling abnormal [Not Recovered/Not Resolved]
  - Muscle tightness [Unknown]
  - Constipation [Not Recovered/Not Resolved]
  - Myalgia [Not Recovered/Not Resolved]
  - Arthritis [Unknown]

NARRATIVE: CASE EVENT DATE: 201711
